FAERS Safety Report 4878011-1 (Version None)
Quarter: 2006Q1

REPORT INFORMATION
  Report Type: 
  Country: None (occurrence: None)
  Receive Date: 20060110
  Receipt Date: 20060104
  Transmission Date: 20060701
  Serious: Yes (Hospitalization)
  Sender: FDA-Public Use
  Company Number: 2005072121

PATIENT
  Age: 70 Year
  Sex: Male

DRUGS (8)
  1. CELEBREX [Suspect]
     Indication: ARTHRITIS
     Dosage: 200 MG (200 MG, 1 IN 1 D), ORAL
     Route: 048
     Dates: start: 20031126, end: 20050201
  2. CELEBREX [Suspect]
     Indication: OSTEOARTHRITIS
     Dosage: 200 MG (200 MG, 1 IN 1 D), ORAL
     Route: 048
     Dates: start: 20031126, end: 20050201
  3. ZOCOR [Concomitant]
  4. ATACAND [Concomitant]
  5. ALBYL-E (ACETYLSALICYLIC ACID, MAGNESIUM OXIDE) [Concomitant]
  6. METOPROLOL SUCCINATE [Concomitant]
  7. PARACET (PARACETAMOL) [Concomitant]
  8. ALLOPURINOL [Concomitant]

REACTIONS (2)
  - ANGINA PECTORIS [None]
  - AORTIC VALVE STENOSIS [None]
